FAERS Safety Report 9161915 (Version 1)
Quarter: 2013Q1

REPORT INFORMATION
  Report Type: Spontaneous
  Country: ZA (occurrence: ZA)
  Receive Date: 20130314
  Receipt Date: 20130314
  Transmission Date: 20140127
  Serious: Yes (Other)
  Sender: FDA-Public Use
  Company Number: ZA-JNJFOC-20130301364

PATIENT
  Age: 51 None
  Sex: Female
  Weight: 85 kg

DRUGS (12)
  1. DUROGESIC [Suspect]
     Indication: ARTHRALGIA
     Route: 062
     Dates: start: 20130226
  2. DUROGESIC [Suspect]
     Indication: ARTHRALGIA
     Route: 062
     Dates: start: 201211
  3. DUROGESIC [Suspect]
     Indication: FIBROMYALGIA
     Route: 062
     Dates: start: 20130226
  4. DUROGESIC [Suspect]
     Indication: FIBROMYALGIA
     Route: 062
     Dates: start: 201211
  5. LOSAR PLUS [Concomitant]
     Indication: HYPERTENSION
     Route: 048
  6. ESCITALOPRAM [Concomitant]
     Indication: DEPRESSION
     Route: 048
  7. METFORAL [Concomitant]
     Indication: GLUCOSE TOLERANCE IMPAIRED
     Route: 048
  8. DIOTROXIN [Concomitant]
     Indication: HYPOTHYROIDISM
     Route: 048
  9. ELTROXIN [Concomitant]
     Indication: HYPOTHYROIDISM
     Route: 048
  10. ESTROFEM N [Concomitant]
     Indication: HORMONE REPLACEMENT THERAPY
     Route: 048
  11. PUR-BLOKA [Concomitant]
     Indication: HEART RATE INCREASED
     Route: 048
  12. LYRICA [Concomitant]
     Indication: NEURALGIA
     Route: 048

REACTIONS (21)
  - Confusional state [Recovered/Resolved]
  - Depression [Recovered/Resolved]
  - Sjogren^s syndrome [Unknown]
  - Incorrect drug administration duration [Unknown]
  - Nausea [Recovered/Resolved]
  - Weight increased [Recovered/Resolved]
  - Abdominal distension [Not Recovered/Not Resolved]
  - Somnolence [Not Recovered/Not Resolved]
  - Fatigue [Not Recovered/Not Resolved]
  - Insomnia [Recovered/Resolved]
  - Dry mouth [Not Recovered/Not Resolved]
  - Musculoskeletal chest pain [Recovered/Resolved]
  - Product quality issue [Unknown]
  - Feeling hot [Unknown]
  - Feeling abnormal [Unknown]
  - Pyrexia [Unknown]
  - Enuresis [Unknown]
  - Product quality issue [Unknown]
  - Product quality issue [Unknown]
  - Drug administered at inappropriate site [Unknown]
  - Drug dose omission [Unknown]
